FAERS Safety Report 15155642 (Version 1)
Quarter: 2018Q3

REPORT INFORMATION
  Report Type: Spontaneous
  Country: FR (occurrence: FR)
  Receive Date: 20180717
  Receipt Date: 20180717
  Transmission Date: 20181010
  Serious: Yes (Hospitalization, Other)
  Sender: FDA-Public Use
  Company Number: FR-TEVA-2018-FR-928106

PATIENT
  Age: 33 Year
  Sex: Male

DRUGS (9)
  1. ZELITREX 500 MG, COMPRIM? ENROB? [Concomitant]
     Active Substance: VALACYCLOVIR HYDROCHLORIDE
  2. ZOPHREN [Concomitant]
     Active Substance: ONDANSETRON
  3. BACTRIM [Concomitant]
     Active Substance: SULFAMETHOXAZOLE\TRIMETHOPRIM
  4. DUPHALAC [Concomitant]
     Active Substance: LACTULOSE
  5. PARACETAMOL [Concomitant]
     Active Substance: ACETAMINOPHEN
  6. DEPAKINE [Concomitant]
     Active Substance: VALPROATE SODIUM
  7. INEXIUM [Concomitant]
     Active Substance: ESOMEPRAZOLE
  8. METHOTREXATE. [Suspect]
     Active Substance: METHOTREXATE
     Indication: CHEMOTHERAPY
     Route: 042
     Dates: start: 20171002, end: 20171002
  9. PRIMPERAN [Concomitant]
     Active Substance: METOCLOPRAMIDE HYDROCHLORIDE

REACTIONS (1)
  - Renal impairment [Recovered/Resolved]

NARRATIVE: CASE EVENT DATE: 20171003
